FAERS Safety Report 8888454 (Version 8)
Quarter: 2013Q1

REPORT INFORMATION
  Report Type: Report from Study
  Country: AU (occurrence: AU)
  Receive Date: 20121106
  Receipt Date: 20130207
  Transmission Date: 20140127
  Serious: Yes (Death, Life-Threatening, Hospitalization, Other)
  Sender: FDA-Public Use
  Company Number: PHHY2012AU089760

PATIENT
  Age: 53 None
  Sex: Female
  Weight: 67.5 kg

DRUGS (4)
  1. CLOZARIL [Suspect]
     Indication: SCHIZOPHRENIA
     Dosage: 250 MG, DAILY
     Route: 048
     Dates: start: 19941207
  2. CHEMOTHERAPEUTICS [Interacting]
     Indication: NEOPLASM MALIGNANT
  3. SYMBICORT TU [Concomitant]
     Indication: ASTHMA
     Dosage: 1 DF, BID
  4. OLANZAPINE [Concomitant]

REACTIONS (20)
  - Bladder squamous cell carcinoma stage unspecified [Fatal]
  - Metastases to kidney [Fatal]
  - Metastasis [Fatal]
  - Neoplasm malignant [Fatal]
  - Lymphadenopathy [Fatal]
  - Urinary tract infection [Not Recovered/Not Resolved]
  - Pyrexia [Unknown]
  - Hydronephrosis [Not Recovered/Not Resolved]
  - Hydroureter [Not Recovered/Not Resolved]
  - Dehydration [Unknown]
  - Terminal state [Unknown]
  - Drug interaction [Unknown]
  - Thinking abnormal [Unknown]
  - Mania [Unknown]
  - Sepsis [Unknown]
  - Lower respiratory tract infection [Unknown]
  - Delirium [Unknown]
  - Weight decreased [Unknown]
  - Red blood cell sedimentation rate increased [Not Recovered/Not Resolved]
  - Anaemia [Not Recovered/Not Resolved]
